FAERS Safety Report 6148168-3 (Version None)
Quarter: 2009Q2

REPORT INFORMATION
  Report Type: 
  Country: None (occurrence: None)
  Receive Date: 20090406
  Receipt Date: 20090327
  Transmission Date: 20091009
  Serious: Yes (Hospitalization)
  Sender: FDA-Public Use
  Company Number: WAES 0802USA04821

PATIENT
  Age: 46 Year
  Sex: Female

DRUGS (9)
  1. CAP VORINOSTAT [Suspect]
     Indication: NON-SMALL CELL LUNG CANCER
     Dosage: 400 MG/DAILY PO
     Route: 048
     Dates: start: 20080207, end: 20080220
  2. CARBOPLATIN [Suspect]
     Indication: NON-SMALL CELL LUNG CANCER
     Dosage: 684 MG/1X IV
     Route: 042
     Dates: start: 20080213, end: 20080213
  3. PACLITAXEL [Suspect]
     Dosage: 320 MG/1X IV
     Route: 042
     Dates: start: 20080213, end: 20080213
  4. BENADRYL [Concomitant]
  5. STEMETIL [Concomitant]
  6. TRAMADOL HCL [Concomitant]
  7. DEXAMETHASONE 4MG TAB [Concomitant]
  8. ONDANSETRON [Concomitant]
  9. RANITIDINE [Concomitant]

REACTIONS (3)
  - FEBRILE NEUTROPENIA [None]
  - HYPONATRAEMIA [None]
  - WHITE BLOOD CELL COUNT DECREASED [None]
